FAERS Safety Report 5018001-1 (Version None)
Quarter: 2006Q2

REPORT INFORMATION
  Report Type: 
  Country: None (occurrence: None)
  Receive Date: 20060530
  Receipt Date: 20050111
  Transmission Date: 20061013
  Serious: Yes (Other)
  Sender: FDA-Public Use
  Company Number: 2005012313

PATIENT
  Age: 47 Year
  Sex: Male
  Weight: 80 kg

DRUGS (5)
  1. LYRICA [Suspect]
     Indication: NEURALGIA
     Dosage: 150 MG (75 MG, 2 IN 1 D), ORAL
     Route: 048
     Dates: start: 20041208, end: 20041229
  2. RAMIPRIL [Concomitant]
  3. ATORVASTATIN CALCIUM [Concomitant]
  4. CELECOXIB (CELECOXIB) [Concomitant]
  5. METFORMIN [Concomitant]

REACTIONS (1)
  - VISUAL ACUITY REDUCED [None]
